FAERS Safety Report 9061486 (Version 1)
Quarter: 2013Q1

REPORT INFORMATION
  Report Type: Spontaneous
  Country: US (occurrence: None)
  Receive Date: 20130211
  Receipt Date: 20130211
  Transmission Date: 20140127
  Serious: Yes (Hospitalization)
  Sender: FDA-Public Use
  Company Number: None

PATIENT
  Sex: Female
  Weight: 72.57 kg

DRUGS (11)
  1. CARBOPLATIN [Suspect]
  2. PACLITAXEL (TAXOL) [Suspect]
  3. COLACE [Concomitant]
  4. FLEXERIL [Concomitant]
  5. GEMFIBROZIL [Concomitant]
  6. GLIMEPIRIDE [Concomitant]
  7. IBUPROFEN [Concomitant]
  8. METOPROLOL [Concomitant]
  9. PEPCID [Concomitant]
  10. RAMIPRIL [Concomitant]
  11. SENOKOT [Concomitant]

REACTIONS (3)
  - Fatigue [None]
  - Dehydration [None]
  - Neutropenia [None]
